FAERS Safety Report 5680466-X (Version None)
Quarter: 2008Q1

REPORT INFORMATION
  Report Type: 
  Country: None (occurrence: None)
  Receive Date: 20080326
  Receipt Date: 20080319
  Transmission Date: 20080703
  Serious: Yes (Other)
  Sender: FDA-Public Use
  Company Number: B0511093A

PATIENT
  Age: 36 Year
  Sex: Male

DRUGS (1)
  1. SEROXAT [Suspect]
     Indication: ANXIETY
     Route: 048

REACTIONS (11)
  - AGGRESSION [None]
  - ANXIETY [None]
  - DISTURBANCE IN SEXUAL AROUSAL [None]
  - ERECTILE DYSFUNCTION [None]
  - FATIGUE [None]
  - HYPERHIDROSIS [None]
  - INSOMNIA [None]
  - IRRITABILITY [None]
  - NIGHTMARE [None]
  - SUICIDAL IDEATION [None]
  - WITHDRAWAL SYNDROME [None]
